FAERS Safety Report 24242209 (Version 1)
Quarter: 2024Q3

REPORT INFORMATION
  Report Type: Spontaneous
  Country: US (occurrence: None)
  Receive Date: 20240822
  Receipt Date: 20240822
  Transmission Date: 20241016
  Serious: No
  Sender: Public
  Company Number: None

PATIENT
  Age: 39 Year
  Sex: Female
  Weight: 104.33 kg

DRUGS (4)
  1. HADLIMA [Suspect]
     Active Substance: ADALIMUMAB-BWWD
     Indication: Hidradenitis
     Dosage: 160MG DAY 0, 80MG DAY 14 THEN 40MG EVERY 2 WEEKS SUBCUTANEOUS
     Dates: start: 20240531, end: 202408
  2. HADLIMA [Suspect]
     Active Substance: ADALIMUMAB-BWWD
     Indication: Spinal osteoarthritis
  3. HADLIMA [Suspect]
     Active Substance: ADALIMUMAB-BWWD
     Indication: Hidradenitis
     Dosage: 160AMG DAY 0, 80MG DAY 14 AND 40MG EVERY 2 WEEKS
     Dates: start: 20240531, end: 202408
  4. HADLIMA [Suspect]
     Active Substance: ADALIMUMAB-BWWD
     Indication: Spinal osteoarthritis

REACTIONS (3)
  - Lacrimation increased [None]
  - Visual impairment [None]
  - Blindness transient [None]
